APPROVED DRUG PRODUCT: ZETONNA
Active Ingredient: CICLESONIDE
Strength: 0.037MG/INH
Dosage Form/Route: AEROSOL, METERED;NASAL
Application: N202129 | Product #001
Applicant: COVIS PHARMA GMBH
Approved: Jan 20, 2012 | RLD: Yes | RS: No | Type: DISCN

PATENTS:
Patent 8371292 | Expires: Feb 1, 2028